FAERS Safety Report 12178877 (Version 1)
Quarter: 2016Q1

REPORT INFORMATION
  Report Type: Spontaneous
  Country: US (occurrence: US)
  Receive Date: 20160314
  Receipt Date: 20160314
  Transmission Date: 20160526
  Serious: No
  Sender: FDA-Public Use
  Company Number: US-SA-2016SA012377

PATIENT
  Age: 65 Year
  Sex: Female

DRUGS (3)
  1. SOLOSTAR [Concomitant]
     Active Substance: DEVICE
     Indication: TYPE 2 DIABETES MELLITUS
     Dates: start: 20160116
  2. HUMALOG [Concomitant]
     Active Substance: INSULIN LISPRO
     Dosage: STRENGH: MIX 75/25 (UNIT: UNKNOWN)?DOSE: 40 (UNIT: UNKNOWN)?IN THE MORNING AND AFTER LUNCH
  3. TOUJEO [Suspect]
     Active Substance: INSULIN GLARGINE
     Indication: TYPE 2 DIABETES MELLITUS
     Dosage: AT NIGHT DOSE:12 UNIT(S)
     Route: 065
     Dates: start: 20160116

REACTIONS (1)
  - Blood glucose increased [Not Recovered/Not Resolved]
